FAERS Safety Report 23219524 (Version 1)
Quarter: 2023Q4

REPORT INFORMATION
  Report Type: Spontaneous
  Country: US (occurrence: US)
  Receive Date: 20231122
  Receipt Date: 20231122
  Transmission Date: 20240109
  Serious: No
  Sender: FDA-Public Use
  Company Number: US-009507513-2311USA005718

PATIENT
  Age: 63 Year
  Sex: Male

DRUGS (1)
  1. TEMODAR [Suspect]
     Active Substance: TEMOZOLOMIDE
     Indication: Parathyroid tumour malignant
     Dosage: 150-200MG/M2/D X 5D, Q28D CYCLICAL
     Route: 048

REACTIONS (1)
  - Off label use [Unknown]
